FAERS Safety Report 23535936 (Version 2)
Quarter: 2024Q3

REPORT INFORMATION
  Report Type: Spontaneous
  Country: US (occurrence: US)
  Receive Date: 20240219
  Receipt Date: 20240918
  Transmission Date: 20241017
  Serious: No
  Sender: TAKEDA
  Company Number: US-TAKEDA-2024TUS014989

PATIENT

DRUGS (5)
  1. ENTYVIO [Suspect]
     Active Substance: VEDOLIZUMAB
     Indication: Product used for unknown indication
     Dosage: UNK UNK, Q6WEEKS
     Route: 065
  2. ENTYVIO [Suspect]
     Active Substance: VEDOLIZUMAB
     Indication: Product used for unknown indication
     Dosage: UNK
     Route: 058
  3. ENTYVIO [Suspect]
     Active Substance: VEDOLIZUMAB
     Indication: Product used for unknown indication
     Dosage: UNK
     Route: 058
  4. ENTYVIO [Suspect]
     Active Substance: VEDOLIZUMAB
     Indication: Product used for unknown indication
     Dosage: UNK
     Route: 058
  5. ENTYVIO [Suspect]
     Active Substance: VEDOLIZUMAB
     Indication: Product used for unknown indication
     Dosage: UNK
     Route: 058

REACTIONS (2)
  - Therapeutic reaction time decreased [Unknown]
  - Off label use [Unknown]
